FAERS Safety Report 24710256 (Version 2)
Quarter: 2024Q4

REPORT INFORMATION
  Report Type: Report from Study
  Country: US (occurrence: US)
  Receive Date: 20241209
  Receipt Date: 20241212
  Transmission Date: 20250115
  Serious: No
  Sender: AMGEN
  Company Number: US-AMGEN-USASP2024238085

PATIENT
  Age: 71 Year
  Sex: Female

DRUGS (1)
  1. EVENITY [Suspect]
     Active Substance: ROMOSOZUMAB-AQQG
     Indication: Product used for unknown indication
     Dosage: UNK
     Route: 065
     Dates: start: 202406

REACTIONS (11)
  - Arthralgia [Recovering/Resolving]
  - Groin pain [Recovering/Resolving]
  - Arthritis [Recovering/Resolving]
  - Dry skin [Recovering/Resolving]
  - Paraesthesia [Recovering/Resolving]
  - Injection site pain [Recovering/Resolving]
  - Blood parathyroid hormone increased [Recovering/Resolving]
  - Product administered at inappropriate site [Unknown]
  - Swollen tongue [Unknown]
  - Tongue dry [Unknown]
  - Muscle twitching [Unknown]

NARRATIVE: CASE EVENT DATE: 20240101
